FAERS Safety Report 15296316 (Version 1)
Quarter: 2018Q4

REPORT INFORMATION
  Report Type: Spontaneous
  Country: FR (occurrence: FR)
  Receive Date: 20180820
  Receipt Date: 20180820
  Transmission Date: 20190204
  Serious: Yes (Life-Threatening, Other)
  Sender: FDA-Public Use
  Company Number: FR-PFIZER INC-2018329825

PATIENT
  Age: 71 Year
  Sex: Female

DRUGS (10)
  1. METFORMIN HCL [Suspect]
     Active Substance: METFORMIN HYDROCHLORIDE
     Indication: TYPE 2 DIABETES MELLITUS
     Dosage: 1.5 DF, QD (2550 MG ONCE DAILY)
     Route: 048
     Dates: end: 20180106
  2. EZETROL [Concomitant]
     Active Substance: EZETIMIBE
     Dosage: UNK
  3. LASILIX [Concomitant]
     Active Substance: FUROSEMIDE
     Dosage: UNK
  4. PREVISCAN (FLUINDIONE) [Concomitant]
     Active Substance: FLUINDIONE
     Dosage: 20 MG, UNK
  5. BISOCE [Concomitant]
     Active Substance: BISOPROLOL
     Dosage: UNK
  6. RAMIPRIL. [Suspect]
     Active Substance: RAMIPRIL
     Indication: HYPERTENSION
     Dosage: 10 MG, QD
     Route: 048
     Dates: end: 20180106
  7. SINEMET [Concomitant]
     Active Substance: CARBIDOPA\LEVODOPA
     Dosage: UNK
  8. XALATAN [Concomitant]
     Active Substance: LATANOPROST
     Dosage: UNK
  9. DAONIL M [Suspect]
     Active Substance: GLYBURIDE\METFORMIN
     Indication: TYPE 2 DIABETES MELLITUS
     Dosage: 1.5 MG, 1X/DAY
     Route: 048
  10. STALEVO [Concomitant]
     Active Substance: CARBIDOPA\ENTACAPONE\LEVODOPA
     Dosage: UNK

REACTIONS (4)
  - Vomiting [Recovered/Resolved]
  - Diarrhoea [Recovered/Resolved]
  - Hypoglycaemia [Recovered/Resolved]
  - Lactic acidosis [Recovered/Resolved]
